FAERS Safety Report 4465263-5 (Version None)
Quarter: 2004Q4

REPORT INFORMATION
  Report Type: 
  Country: None (occurrence: None)
  Receive Date: 20041001
  Receipt Date: 20041001
  Transmission Date: 20050328
  Serious: Yes (Disabling)
  Sender: FDA-Public Use
  Company Number: None

PATIENT
  Age: 52 Year
  Sex: Male
  Weight: 77.1115 kg

DRUGS (1)
  1. ZICAM - NASAL GEL [Suspect]
     Dosage: 1 SQUIRT / NOSTRIL EVERY 4 HRS
     Route: 045
     Dates: start: 20031101

REACTIONS (1)
  - ANOSMIA [None]
